FAERS Safety Report 17555895 (Version 1)
Quarter: 2020Q1

REPORT INFORMATION
  Report Type: Spontaneous
  Country: CN (occurrence: CN)
  Receive Date: 20200318
  Receipt Date: 20200318
  Transmission Date: 20200409
  Serious: Yes (Hospitalization, Other)
  Sender: FDA-Public Use
  Company Number: CN-BAXTER-2020BAX005918

PATIENT
  Age: 50 Year
  Sex: Male
  Weight: 57 kg

DRUGS (12)
  1. DOXORUBICIN HYDROCHLORIDE. [Suspect]
     Active Substance: DOXORUBICIN HYDROCHLORIDE
     Indication: HODGKIN^S DISEASE LYMPHOCYTE DEPLETION TYPE STAGE UNSPECIFIED
     Dosage: DOXORUBICIN HYDROCHLORIDE POWDER FOR INJECTION + 0.9% NS 40 ML
     Route: 041
     Dates: start: 20200214, end: 20200214
  2. 0.9% SODIUM CHLORIDE INJECTION [Suspect]
     Active Substance: SODIUM CHLORIDE
     Dosage: DOSE RE-INTRODUCED, ETOPOSIDE INJECTION + 0.9% NS
     Route: 041
  3. ENDOXAN [Suspect]
     Active Substance: CYCLOPHOSPHAMIDE
     Indication: HODGKIN^S DISEASE LYMPHOCYTE DEPLETION TYPE STAGE UNSPECIFIED
     Dosage: ENDOXAN POWDER FOR INJECTION + 0.9% NS 50 ML
     Route: 041
     Dates: start: 20200214, end: 20200214
  4. 0.9% SODIUM CHLORIDE INJECTION [Suspect]
     Active Substance: SODIUM CHLORIDE
     Dosage: ETOPOSIDE INJECTION 200 MG + 0.9% NS
     Route: 041
     Dates: start: 20200214, end: 20200216
  5. ETOPOSIDE. [Suspect]
     Active Substance: ETOPOSIDE
     Dosage: DOSE RE-INTRODUCED, ETOPOSIDE INJECTION + 0.9% NS
     Route: 041
  6. 0.9% SODIUM CHLORIDE INJECTION [Suspect]
     Active Substance: SODIUM CHLORIDE
     Indication: MEDICATION DILUTION
     Dosage: ENDOXAN POWDER FOR INJECTION 1 G + 0.9% NS
     Route: 041
     Dates: start: 20200214, end: 20200214
  7. 0.9% SODIUM CHLORIDE INJECTION [Suspect]
     Active Substance: SODIUM CHLORIDE
     Dosage: DOSE RE-INTRODUCED, ENDOXAN POWDER FOR INJECTION + 0.9% NS
     Route: 041
  8. 0.9% SODIUM CHLORIDE INJECTION [Suspect]
     Active Substance: SODIUM CHLORIDE
     Dosage: DOSE RE-INTRODUCED, DOXORUBICIN HYDROCHLORIDE POWDER FOR INJECTION + 0.9% NS
     Route: 041
  9. ENDOXAN [Suspect]
     Active Substance: CYCLOPHOSPHAMIDE
     Dosage: DOSE RE-INTRODUCED, ENDOXAN POWDER FOR INJECTION + 0.9% NS
     Route: 041
  10. ETOPOSIDE. [Suspect]
     Active Substance: ETOPOSIDE
     Indication: HODGKIN^S DISEASE LYMPHOCYTE DEPLETION TYPE STAGE UNSPECIFIED
     Dosage: ETOPOSIDE INJECTION + 0.9% NS 100 ML
     Route: 041
     Dates: start: 20200214, end: 20200216
  11. DOXORUBICIN HYDROCHLORIDE. [Suspect]
     Active Substance: DOXORUBICIN HYDROCHLORIDE
     Dosage: DOSE RE-INTRODUCED, DOXORUBICIN HYDROCHLORIDE POWDER FOR INJECTION + 0.9% NS
     Route: 041
  12. 0.9% SODIUM CHLORIDE INJECTION [Suspect]
     Active Substance: SODIUM CHLORIDE
     Dosage: DOXORUBICIN HYDROCHLORIDE POWDER FOR INJECTION 40 MG + 0.9% NS
     Route: 041
     Dates: start: 20200214, end: 20200214

REACTIONS (2)
  - Neutrophil count decreased [Recovering/Resolving]
  - White blood cell count decreased [Recovering/Resolving]

NARRATIVE: CASE EVENT DATE: 20200224
